FAERS Safety Report 10234827 (Version 1)
Quarter: 2014Q1

REPORT INFORMATION
  Report Type: Spontaneous
  Country: US (occurrence: None)
  Receive Date: 20140306
  Receipt Date: 20140306
  Transmission Date: 20141002
  Serious: Yes (Hospitalization)
  Sender: FDA-Public Use
  Company Number: 163-21880-13044136

PATIENT
  Age: 65 Year
  Sex: Male
  Weight: 97.5 kg

DRUGS (15)
  1. REVLIMID (LENALIDOMIDE) (25 MILLIGRAM, CAPSULES) [Suspect]
     Indication: PLASMA CELL MYELOMA
     Route: 048
     Dates: start: 201101
  2. BENICAR HCT (BENICAR HCT) [Concomitant]
  3. CALCIUM CITRATE (CALCIUM CITRATE) [Concomitant]
  4. CHONDROITIN SULFATE (CHONDROITIN SULFATE) [Concomitant]
  5. ESSENTIAL MAN 50+ (OTHER THERAPEUTIC PRODUCTS) [Concomitant]
  6. TRAZODONE HCL (TRAZODONE HYDROCHLORIDE) [Concomitant]
  7. WARFARIN SODIUM (WARFARIN SODIUM) [Concomitant]
  8. CYMBALTA [Concomitant]
  9. LIPITOR (ATORVASTATIN) [Concomitant]
  10. ASPIRIN (ACETYLSALICYLIC ACID) [Concomitant]
  11. TRAZODONE (TRAZODONE) [Concomitant]
  12. BRILINTA (TICAGRELOR) [Concomitant]
  13. METOPROLOL TARTRATE (METOPROLOL TARTRATE) [Concomitant]
  14. MULTIVITAMINS (MULTIVITAMINS) [Concomitant]
  15. FLAXSEED OIL (LINSEED OIL) [Concomitant]

REACTIONS (1)
  - Myocardial infarction [None]
